FAERS Safety Report 18938577 (Version 1)
Quarter: 2021Q1

REPORT INFORMATION
  Report Type: Spontaneous
  Country: US (occurrence: US)
  Receive Date: 20210224
  Receipt Date: 20210224
  Transmission Date: 20210420
  Serious: No
  Sender: FDA-Public Use
  Company Number: None

PATIENT
  Age: 33 Year
  Sex: Female
  Weight: 76.5 kg

DRUGS (6)
  1. HYOSCYAMINE. [Concomitant]
     Active Substance: HYOSCYAMINE
  2. OMEPRAZOLE. [Concomitant]
     Active Substance: OMEPRAZOLE
  3. MESALAMINE. [Concomitant]
     Active Substance: MESALAMINE
  4. ONDANSETRON [Concomitant]
     Active Substance: ONDANSETRON
  5. MESALAMINE 1000 MG SUP [Suspect]
     Active Substance: MESALAMINE
     Indication: PROCTITIS
     Dosage: ?          QUANTITY:24 SUPPOSITORY(IES);?
     Route: 054
     Dates: start: 20210210, end: 20210224
  6. NUVARING [Concomitant]
     Active Substance: ETHINYL ESTRADIOL\ETONOGESTREL

REACTIONS (4)
  - Skin abrasion [None]
  - Haemorrhage [None]
  - Product quality issue [None]
  - Injury [None]

NARRATIVE: CASE EVENT DATE: 20210217
